FAERS Safety Report 9452359 (Version 1)
Quarter: 2013Q3

REPORT INFORMATION
  Report Type: Spontaneous
  Country: NO (occurrence: NO)
  Receive Date: 20130812
  Receipt Date: 20130812
  Transmission Date: 20140515
  Serious: Yes (Other)
  Sender: FDA-Public Use
  Company Number: NO-ELI_LILLY_AND_COMPANY-NO201308000980

PATIENT
  Age: 22 Year
  Sex: Female

DRUGS (7)
  1. ZYPREXA [Suspect]
     Indication: PSYCHOTIC DISORDER
     Dosage: 10 MG, QD
     Route: 048
     Dates: start: 201209, end: 201306
  2. ABILIFY [Suspect]
     Indication: PSYCHOTIC DISORDER
     Dosage: 30 MG, QD
     Route: 048
     Dates: start: 201209, end: 201306
  3. TRUXAL                             /00012101/ [Concomitant]
     Dosage: 25 MG, QD
     Route: 065
     Dates: start: 201204
  4. TRUXAL                             /00012101/ [Concomitant]
     Dosage: 1 DF, QD
     Route: 065
  5. TRUXAL                             /00012101/ [Concomitant]
     Dosage: 125 MG, QD
     Route: 065
  6. VIVAL [Concomitant]
     Dosage: 10 MG, PRN
     Route: 065
     Dates: start: 201205
  7. ATARAX                             /00058401/ [Concomitant]
     Dosage: 450 MG, QD
     Route: 065
     Dates: start: 201206

REACTIONS (1)
  - Keratoconus [Recovered/Resolved with Sequelae]
